FAERS Safety Report 11131370 (Version 1)
Quarter: 2015Q2

REPORT INFORMATION
  Report Type: Report from Study
  Country: AR (occurrence: AR)
  Receive Date: 20150522
  Receipt Date: 20150522
  Transmission Date: 20150821
  Serious: Yes (Hospitalization, Disabling)
  Sender: FDA-Public Use
  Company Number: AR-EMD SERONO-7276365

PATIENT
  Age: 25 Year
  Sex: Female

DRUGS (1)
  1. REBIF [Suspect]
     Active Substance: INTERFERON BETA-1A
     Indication: MULTIPLE SCLEROSIS
     Dates: start: 20120725, end: 20141009

REACTIONS (19)
  - Diplopia [Not Recovered/Not Resolved]
  - Injection site papule [Recovering/Resolving]
  - Multiple sclerosis relapse [Recovering/Resolving]
  - Abdominal pain [Recovering/Resolving]
  - Abnormal behaviour [Not Recovered/Not Resolved]
  - Pain [Not Recovered/Not Resolved]
  - Tremor [Not Recovered/Not Resolved]
  - Platelet count increased [Unknown]
  - Anger [Not Recovered/Not Resolved]
  - Hypoaesthesia [Recovered/Resolved]
  - Headache [Not Recovered/Not Resolved]
  - Inflammation [Recovering/Resolving]
  - Bone marrow disorder [Unknown]
  - Multiple sclerosis [Unknown]
  - Pain in extremity [Not Recovered/Not Resolved]
  - General physical health deterioration [Not Recovered/Not Resolved]
  - Gait disturbance [Not Recovered/Not Resolved]
  - Injection site pain [Recovering/Resolving]
  - Crying [Unknown]

NARRATIVE: CASE EVENT DATE: 201402
